FAERS Safety Report 9158721 (Version 1)
Quarter: 2013Q1

REPORT INFORMATION
  Report Type: Spontaneous
  Country: US (occurrence: US)
  Receive Date: 20130312
  Receipt Date: 20130312
  Transmission Date: 20140127
  Serious: No
  Sender: FDA-Public Use
  Company Number: US-TEVA-390701USA

PATIENT
  Sex: Female

DRUGS (1)
  1. AZILECT [Suspect]
     Dates: start: 2013, end: 201302

REACTIONS (1)
  - Incontinence [Recovered/Resolved]
